FAERS Safety Report 16825215 (Version 1)
Quarter: 2019Q3

REPORT INFORMATION
  Report Type: Spontaneous
  Country: US (occurrence: US)
  Receive Date: 20190919
  Receipt Date: 20190919
  Transmission Date: 20191005
  Serious: Yes (Hospitalization, Other)
  Sender: FDA-Public Use
  Company Number: US-ALKEM LABORATORIES LIMITED-US-ALKEM-2019-06830

PATIENT
  Age: 3 Year
  Sex: Male

DRUGS (1)
  1. ARIPIPRAZOLE. [Suspect]
     Active Substance: ARIPIPRAZOLE
     Indication: PRODUCT USED FOR UNKNOWN INDICATION
     Dosage: 200 MILLIGRAM (15 MG/KG) 10 TABLETS
     Route: 048

REACTIONS (8)
  - Bradycardia [Recovered/Resolved]
  - Toxicity to various agents [Unknown]
  - Lethargy [Recovered/Resolved]
  - Hypokalaemia [Recovered/Resolved]
  - Somnolence [Recovered/Resolved]
  - Accidental overdose [Unknown]
  - Ataxia [Recovered/Resolved]
  - Blood pressure systolic decreased [Recovered/Resolved]
